FAERS Safety Report 14252759 (Version 1)
Quarter: 2017Q4

REPORT INFORMATION
  Report Type: Spontaneous
  Country: RU (occurrence: RU)
  Receive Date: 20171205
  Receipt Date: 20171205
  Transmission Date: 20180321
  Serious: Yes (Hospitalization)
  Sender: FDA-Public Use
  Company Number: RU-ASTRAZENECA-2017SF22568

PATIENT
  Age: 64 Year
  Sex: Male

DRUGS (4)
  1. BRILINTA [Suspect]
     Active Substance: TICAGRELOR
     Indication: MYOCARDIAL INFARCTION
     Route: 048
     Dates: start: 201706
  2. ATORVASTATIN [Concomitant]
     Active Substance: ATORVASTATIN
  3. ENALAPRIL [Concomitant]
     Active Substance: ENALAPRIL
  4. ACETYLSALICYLIC ACID [Concomitant]
     Active Substance: ASPIRIN

REACTIONS (2)
  - Traumatic haemorrhage [Recovered/Resolved]
  - Angina pectoris [Recovered/Resolved]

NARRATIVE: CASE EVENT DATE: 20171015
